FAERS Safety Report 9679984 (Version 4)
Quarter: 2019Q1

REPORT INFORMATION
  Report Type: Spontaneous
  Country: AT (occurrence: AT)
  Receive Date: 20131110
  Receipt Date: 20190114
  Transmission Date: 20190418
  Serious: Yes (Other)
  Sender: FDA-Public Use
  Company Number: PHHY2013AT126185

PATIENT
  Age: 45 Year
  Sex: Female

DRUGS (1)
  1. GILENYA [Suspect]
     Active Substance: FINGOLIMOD HYDROCHLORIDE
     Indication: RELAPSING-REMITTING MULTIPLE SCLEROSIS
     Route: 048
     Dates: start: 20130618, end: 20130912

REACTIONS (11)
  - Crohn^s disease [Unknown]
  - Gastritis [Recovered/Resolved]
  - Performance status decreased [Recovered/Resolved]
  - Fatigue [Unknown]
  - Visual impairment [Unknown]
  - Abdominal distension [Not Recovered/Not Resolved]
  - Hordeolum [Unknown]
  - Palpitations [Recovered/Resolved]
  - Gastrointestinal inflammation [Recovered/Resolved]
  - Decreased appetite [Recovered/Resolved]
  - Attention deficit/hyperactivity disorder [Recovered/Resolved]

NARRATIVE: CASE EVENT DATE: 20130829
